FAERS Safety Report 4905712-9 (Version None)
Quarter: 2006Q1

REPORT INFORMATION
  Report Type: 
  Country: None (occurrence: None)
  Receive Date: 20060206
  Receipt Date: 20060128
  Transmission Date: 20060701
  Serious: Yes (Life-Threatening, Hospitalization, Other)
  Sender: FDA-Public Use
  Company Number: 2006014987

PATIENT
  Sex: Female

DRUGS (2)
  1. NARDIL [Suspect]
     Indication: ILL-DEFINED DISORDER
     Dates: end: 20060101
  2. ALL OTHER THERAPEUTIC PRODUCTS (ALL OTHER THERAPEUTIC PRODUCTS) [Suspect]
     Indication: NASOPHARYNGITIS

REACTIONS (5)
  - DRUG INTERACTION [None]
  - HYPERTENSIVE CRISIS [None]
  - HYPOTENSION [None]
  - NASOPHARYNGITIS [None]
  - THALAMUS HAEMORRHAGE [None]
